FAERS Safety Report 14070426 (Version 2)
Quarter: 2017Q4

REPORT INFORMATION
  Report Type: Spontaneous
  Country: SE (occurrence: SE)
  Receive Date: 20171010
  Receipt Date: 20171013
  Transmission Date: 20180321
  Serious: Yes (Disabling)
  Sender: FDA-Public Use
  Company Number: SE-CELGENEUS-SWE-20171000951

PATIENT
  Age: 56 Year
  Sex: Female

DRUGS (2)
  1. CARBOPLATIN. [Suspect]
     Active Substance: CARBOPLATIN
     Indication: OVARIAN CANCER
     Route: 065
     Dates: start: 20161019, end: 20170424
  2. ABRAXANE [Suspect]
     Active Substance: PACLITAXEL
     Indication: OVARIAN CANCER
     Route: 041
     Dates: start: 20161019, end: 20170424

REACTIONS (2)
  - Neuropathy peripheral [Not Recovered/Not Resolved]
  - Extremity contracture [Not Recovered/Not Resolved]

NARRATIVE: CASE EVENT DATE: 20161101
